FAERS Safety Report 10255633 (Version 3)
Quarter: 2014Q3

REPORT INFORMATION
  Report Type: Report from Study
  Country: BF (occurrence: BF)
  Receive Date: 20140624
  Receipt Date: 20140718
  Transmission Date: 20150326
  Serious: Yes (Other)
  Sender: FDA-Public Use
  Company Number: BF-ABBVIE-13P-023-1055876-00

PATIENT
  Age: 35 Year
  Sex: Female

DRUGS (2)
  1. TRUVADA [Concomitant]
     Active Substance: EMTRICITABINE\TENOFOVIR DISOPROXIL FUMARATE
     Indication: HIV INFECTION
     Route: 048
     Dates: start: 20110902
  2. KALETRA [Suspect]
     Active Substance: LOPINAVIR\RITONAVIR
     Indication: HIV INFECTION
     Route: 048
     Dates: start: 20110902

REACTIONS (2)
  - Pelvic fluid collection [Not Recovered/Not Resolved]
  - Placenta praevia [Not Recovered/Not Resolved]

NARRATIVE: CASE EVENT DATE: 20130110
